FAERS Safety Report 20608612 (Version 11)
Quarter: 2022Q4

REPORT INFORMATION
  Report Type: Other
  Country: CA (occurrence: None)
  Receive Date: 20220317
  Receipt Date: 20221124
  Transmission Date: 20230113
  Serious: No
  Sender: FDA-Public Use
  Company Number: CA-ROCHE-3052249

PATIENT
  Sex: Female

DRUGS (5)
  1. OCREVUS [Suspect]
     Active Substance: OCRELIZUMAB
     Indication: Relapsing-remitting multiple sclerosis
     Dosage: AT DAY 0 AND 14, THEN 600 MG EVERY 6 MONTH
     Route: 042
     Dates: start: 20180827
  2. ALEVE [Concomitant]
     Active Substance: NAPROXEN SODIUM
  3. ADVIL [Concomitant]
     Active Substance: IBUPROFEN
  4. TYLENOL [Concomitant]
     Active Substance: ACETAMINOPHEN
  5. PAXLOVID [Concomitant]
     Active Substance: NIRMATRELVIR\RITONAVIR

REACTIONS (1)
  - COVID-19 [Recovered/Resolved]
